FAERS Safety Report 11803363 (Version 7)
Quarter: 2016Q4

REPORT INFORMATION
  Report Type: Report from Study
  Country: JP (occurrence: JP)
  Receive Date: 20151204
  Receipt Date: 20161010
  Transmission Date: 20170206
  Serious: Yes (Hospitalization)
  Sender: FDA-Public Use
  Company Number: JP-EISAI MEDICAL RESEARCH-EC-2015-012483

PATIENT
  Age: 59 Year
  Sex: Male
  Weight: 93 kg

DRUGS (34)
  1. LENDORMIN D [Concomitant]
     Active Substance: BROTIZOLAM
  2. LEVOFLOXACIN HEMIHYDRATE [Concomitant]
     Active Substance: LEVOFLOXACIN
  3. PRIMPERAN [Concomitant]
     Active Substance: METOCLOPRAMIDE HYDROCHLORIDE
  4. LENVATINIB [Suspect]
     Active Substance: LENVATINIB
     Indication: RENAL CELL CARCINOMA
     Route: 048
     Dates: start: 20151021, end: 20151124
  5. LENVATINIB [Suspect]
     Active Substance: LENVATINIB
     Route: 048
     Dates: start: 20160120, end: 20160802
  6. MOHRUS TAPE [Concomitant]
     Active Substance: KETOPROFEN
  7. MAGLAX [Concomitant]
     Active Substance: MAGNESIUM OXIDE
  8. OXYCODONE [Concomitant]
     Active Substance: OXYCODONE
  9. AMLODIPINE [Concomitant]
     Active Substance: AMLODIPINE BESYLATE
  10. BLOPRESS [Concomitant]
     Active Substance: CANDESARTAN CILEXETIL
  11. LYRICA [Concomitant]
     Active Substance: PREGABALIN
  12. PURSENNID [Concomitant]
     Active Substance: SENNOSIDES A AND B
  13. OXINORM [Concomitant]
     Active Substance: OXYCODONE HYDROCHLORIDE
  14. CALONAL [Concomitant]
     Active Substance: ACETAMINOPHEN
  15. RANMARK [Concomitant]
     Active Substance: DENOSUMAB
  16. DERMOVATE [Concomitant]
     Active Substance: CLOBETASOL
  17. GASMOTIN [Concomitant]
     Active Substance: MOSAPRIDE CITRATE
  18. AFINITOR [Suspect]
     Active Substance: EVEROLIMUS
     Route: 048
     Dates: start: 20151229, end: 20160113
  19. LIPITOR [Concomitant]
     Active Substance: ATORVASTATIN CALCIUM
  20. FLUITRAN [Concomitant]
     Active Substance: TRICHLORMETHIAZIDE
  21. JANUVIA [Concomitant]
     Active Substance: SITAGLIPTIN PHOSPHATE
  22. AFINITOR [Suspect]
     Active Substance: EVEROLIMUS
     Route: 048
     Dates: start: 20160120
  23. LANSOPRAZOLE. [Concomitant]
     Active Substance: LANSOPRAZOLE
  24. INDOMETACIN [Concomitant]
     Active Substance: INDOMETHACIN
  25. TENORMIN [Concomitant]
     Active Substance: ATENOLOL
  26. CELECOX [Concomitant]
     Active Substance: CELECOXIB
  27. AZUNOL [Concomitant]
     Active Substance: SODIUM GUALENATE
  28. AMARYL [Concomitant]
     Active Substance: GLIMEPIRIDE
  29. GENTACIN [Concomitant]
     Active Substance: GENTAMICIN SULFATE
  30. LENVATINIB [Suspect]
     Active Substance: LENVATINIB
     Route: 048
     Dates: start: 20151229, end: 20160113
  31. AFINITOR [Suspect]
     Active Substance: EVEROLIMUS
     Indication: RENAL CELL CARCINOMA
     Route: 048
     Dates: start: 20151021, end: 20151124
  32. DENOTAS [Concomitant]
     Active Substance: CALCIUM CARBONATE\CHOLECALCIFEROL\MAGNESIUM CARBONATE
  33. HIRUDOID [Concomitant]
     Active Substance: GLYCOSAMINOGLYCANS
  34. AZUNOL GARGLE LIQUID [Concomitant]

REACTIONS (2)
  - Decreased appetite [Recovering/Resolving]
  - Dehydration [Recovered/Resolved]

NARRATIVE: CASE EVENT DATE: 20151127
